FAERS Safety Report 11241654 (Version 1)
Quarter: 2015Q3

REPORT INFORMATION
  Report Type: Spontaneous
  Country: BR (occurrence: BR)
  Receive Date: 20150706
  Receipt Date: 20150706
  Transmission Date: 20151125
  Serious: Yes (Other)
  Sender: FDA-Public Use
  Company Number: BR-ELI_LILLY_AND_COMPANY-BR201506008659

PATIENT
  Age: 72 Year
  Sex: Female
  Weight: 58 kg

DRUGS (2)
  1. HUMALOG [Suspect]
     Active Substance: INSULIN LISPRO
     Indication: IMPAIRED INSULIN SECRETION
     Dosage: UNK UNK, PRN
     Route: 065
     Dates: start: 201305
  2. LANTUS [Concomitant]
     Active Substance: INSULIN GLARGINE
     Indication: IMPAIRED INSULIN SECRETION
     Dosage: 32 IU, EACH MORNING
     Route: 065

REACTIONS (3)
  - Endometrial cancer metastatic [Not Recovered/Not Resolved]
  - Intercepted product selection error [Unknown]
  - Hypoaesthesia [Not Recovered/Not Resolved]

NARRATIVE: CASE EVENT DATE: 201308
